FAERS Safety Report 5937725-2 (Version None)
Quarter: 2008Q4

REPORT INFORMATION
  Report Type: 
  Country: None (occurrence: None)
  Receive Date: 20081031
  Receipt Date: 20081018
  Transmission Date: 20090506
  Serious: Yes (Other)
  Sender: FDA-Public Use
  Company Number: FR-GENENTECH-270127

PATIENT
  Age: 71 Year
  Sex: Male

DRUGS (2)
  1. RANIBIZUMAB [Suspect]
     Indication: MACULAR DEGENERATION
     Dosage: UNK
     Route: 031
     Dates: start: 20070802
  2. RANIBIZUMAB [Suspect]
     Dosage: .05 ML, UNK
     Route: 046
     Dates: start: 20081007

REACTIONS (1)
  - RETINAL PIGMENT EPITHELIAL TEAR [None]
